FAERS Safety Report 14140623 (Version 1)
Quarter: 2017Q4

REPORT INFORMATION
  Report Type: Spontaneous
  Country: US (occurrence: US)
  Receive Date: 20171027
  Receipt Date: 20171027
  Transmission Date: 20180321
  Serious: Yes (Life-Threatening, Hospitalization, Disabling, Other)
  Sender: FDA-Public Use
  Company Number: None

PATIENT
  Age: 31 Year
  Sex: Female
  Weight: 99 kg

DRUGS (3)
  1. NUVARING [Suspect]
     Active Substance: ETHINYL ESTRADIOL\ETONOGESTREL
     Indication: CONTRACEPTION
     Dosage: ?          QUANTITY:1 RING;OTHER FREQUENCY:3 WEEKS IN, 1 WEEK;?
     Route: 067
     Dates: start: 20111015, end: 20170620
  2. ZOMIG [Concomitant]
     Active Substance: ZOLMITRIPTAN
  3. WARFARIN [Concomitant]
     Active Substance: WARFARIN

REACTIONS (1)
  - Portal vein thrombosis [None]

NARRATIVE: CASE EVENT DATE: 20170620
